FAERS Safety Report 6127880-6 (Version None)
Quarter: 2009Q1

REPORT INFORMATION
  Report Type: 
  Country: None (occurrence: None)
  Receive Date: 20090320
  Receipt Date: 20090320
  Transmission Date: 20090719
  Serious: Yes (Other)
  Sender: FDA-Public Use
  Company Number: None

PATIENT
  Sex: Female

DRUGS (2)
  1. MELLARIL [Suspect]
     Indication: SCHIZOPHRENIA
     Dosage: MIN. 1 X DA NIGHTLY TAB SINCE AGE 17 OFF AND ON OVER LIFETIME PRIOR TO PROLIXIN
  2. COGENTIN [Concomitant]

REACTIONS (2)
  - DEPRESSED LEVEL OF CONSCIOUSNESS [None]
  - INCORRECT DOSE ADMINISTERED [None]
